FAERS Safety Report 5160619-X (Version None)
Quarter: 2006Q4

REPORT INFORMATION
  Report Type: 
  Country: None (occurrence: None)
  Receive Date: 20061121
  Receipt Date: 20061023
  Transmission Date: 20070319
  Serious: Yes (Hospitalization, Other)
  Sender: FDA-Public Use
  Company Number: 2005138801

PATIENT
  Age: 81 Year
  Sex: Female

DRUGS (2)
  1. BEXTRA [Suspect]
     Dates: start: 20010601
  2. VIOXX [Suspect]
     Dates: start: 20010601

REACTIONS (7)
  - BLINDNESS TRANSIENT [None]
  - BRADYCARDIA [None]
  - CEREBROVASCULAR ACCIDENT [None]
  - DEPRESSED LEVEL OF CONSCIOUSNESS [None]
  - FACIAL PALSY [None]
  - HEADACHE [None]
  - VISION BLURRED [None]
